APPROVED DRUG PRODUCT: DAPIPRAZOLE HYDROCHLORIDE
Active Ingredient: DAPIPRAZOLE HYDROCHLORIDE
Strength: 0.5% **Federal Register determination that product was not discontinued or withdrawn for safety or effectiveness reasons**
Dosage Form/Route: SOLUTION/DROPS;OPHTHALMIC
Application: N019849 | Product #001
Applicant: FERA PHARMACEUTICALS LLC
Approved: Dec 31, 1990 | RLD: Yes | RS: No | Type: DISCN